FAERS Safety Report 17984251 (Version 1)
Quarter: 2020Q3

REPORT INFORMATION
  Report Type: Spontaneous
  Country: US (occurrence: US)
  Receive Date: 20200706
  Receipt Date: 20200706
  Transmission Date: 20201103
  Serious: Yes (Disabling)
  Sender: FDA-Public Use
  Company Number: None

PATIENT
  Age: 30 Year
  Sex: Male
  Weight: 68.4 kg

DRUGS (6)
  1. GUAIFENESIN AND CODEINE PHOSPHATE [Suspect]
     Active Substance: CODEINE PHOSPHATE\GUAIFENESIN
     Indication: OROPHARYNGEAL PAIN
     Dosage: TEASPOONFUL
     Route: 048
     Dates: start: 20200415, end: 20200628
  2. COUGH SYRUP [Concomitant]
     Active Substance: DEXTROMETHORPHAN HYDROBROMIDE\GUAIFENESIN
  3. LEXAPRO [Suspect]
     Active Substance: ESCITALOPRAM OXALATE
     Indication: ANXIETY
     Dosage: ?          QUANTITY:1 TEASPOON(S);?
  4. GUAIFENESIN AND CODEINE PHOSPHATE [Suspect]
     Active Substance: CODEINE PHOSPHATE\GUAIFENESIN
     Indication: COUGH
     Dosage: TEASPOONFUL
     Route: 048
     Dates: start: 20200415, end: 20200628
  5. HYDROXYZINE [Concomitant]
     Active Substance: HYDROXYZINE HYDROCHLORIDE
  6. IBUPROFEN. [Concomitant]
     Active Substance: IBUPROFEN

REACTIONS (5)
  - Oropharyngeal pain [None]
  - Road traffic accident [None]
  - Vomiting [None]
  - Feeling abnormal [None]
  - Nausea [None]

NARRATIVE: CASE EVENT DATE: 20200604
